FAERS Safety Report 24622441 (Version 2)
Quarter: 2024Q4

REPORT INFORMATION
  Report Type: Spontaneous
  Country: AU (occurrence: AU)
  Receive Date: 20241115
  Receipt Date: 20241201
  Transmission Date: 20250114
  Serious: Yes (Hospitalization, Other)
  Sender: NOVO NORDISK
  Company Number: AU-NOVOPROD-1276434

PATIENT
  Age: 24 Year
  Sex: Male
  Weight: 104 kg

DRUGS (2)
  1. OZEMPIC [Suspect]
     Active Substance: SEMAGLUTIDE
     Indication: Weight control
     Dosage: 1 MG, QW (ON AND OFF)
     Route: 058
     Dates: start: 2022
  2. CITALOPRAM [Concomitant]
     Active Substance: CITALOPRAM
     Indication: Product used for unknown indication
     Dosage: UNK

REACTIONS (5)
  - Bile duct stone [Recovered/Resolved]
  - Cholelithiasis [Unknown]
  - Decreased appetite [Unknown]
  - Inappropriate schedule of product administration [Unknown]
  - Off label use [Unknown]

NARRATIVE: CASE EVENT DATE: 20220101
